FAERS Safety Report 14012483 (Version 2)
Quarter: 2018Q1

REPORT INFORMATION
  Report Type: Spontaneous
  Country: IT (occurrence: IT)
  Receive Date: 20170926
  Receipt Date: 20180123
  Transmission Date: 20180508
  Serious: Yes (Other)
  Sender: FDA-Public Use
  Company Number: IT-PFIZER INC-2017410275

PATIENT
  Age: 31 Year
  Sex: Female

DRUGS (4)
  1. ESOMEPRAZOLE SODIUM. [Concomitant]
     Active Substance: ESOMEPRAZOLE SODIUM
     Dosage: UNK
  2. VESSEL /00393001/ [Concomitant]
     Dosage: UNK
  3. SERTRALINE HCL [Suspect]
     Active Substance: SERTRALINE HYDROCHLORIDE
     Indication: PANIC ATTACK
     Dosage: 1 DF, DAILY
     Route: 048
     Dates: start: 20170829, end: 20170831
  4. LEVOPRAID /01142501/ [Concomitant]
     Active Substance: LEVOSULPIRIDE
     Dosage: UNK

REACTIONS (2)
  - Nausea [Unknown]
  - Skin burning sensation [Unknown]

NARRATIVE: CASE EVENT DATE: 20170831
